FAERS Safety Report 9011656 (Version 1)
Quarter: 2013Q1

REPORT INFORMATION
  Report Type: Spontaneous
  Country: JP (occurrence: JP)
  Receive Date: 20130108
  Receipt Date: 20130108
  Transmission Date: 20140127
  Serious: Yes (Other)
  Sender: FDA-Public Use
  Company Number: JP-ROCHE-1175321

PATIENT
  Age: 27 Year
  Sex: Female

DRUGS (1)
  1. ROCEPHIN [Suspect]
     Indication: PNEUMONIA
     Route: 042

REACTIONS (5)
  - Benign hydatidiform mole [Unknown]
  - Acute respiratory distress syndrome [Unknown]
  - Ovarian hyperstimulation syndrome [Unknown]
  - Endometrial ablation [Unknown]
  - Exposure during pregnancy [Unknown]
